FAERS Safety Report 8215463-3 (Version None)
Quarter: 2012Q1

REPORT INFORMATION
  Report Type: 
  Country: None (occurrence: None)
  Receive Date: 20120316
  Receipt Date: 20120313
  Transmission Date: 20120608
  Serious: Yes (Hospitalization, Other)
  Sender: FDA-Public Use
  Company Number: IE-AMGEN-IRLSP2011044165

PATIENT
  Age: 62 Year
  Sex: Female

DRUGS (8)
  1. NEULASTA [Suspect]
     Indication: CHEMOTHERAPY
     Dosage: 6 MG, Q3WK
     Route: 058
     Dates: start: 20110805
  2. XANAX [Concomitant]
  3. VALOID                             /00014902/ [Concomitant]
  4. DEXAMETHASONE [Concomitant]
  5. LOSEC                              /00661201/ [Concomitant]
  6. ANTINEOPLASTIC AGENTS [Concomitant]
  7. ZOFRAN [Concomitant]
  8. LACTULOSE [Concomitant]

REACTIONS (2)
  - ARTHRALGIA [None]
  - MALAISE [None]
